FAERS Safety Report 7793448-9 (Version None)
Quarter: 2011Q4

REPORT INFORMATION
  Report Type: 
  Country: None (occurrence: None)
  Receive Date: 20111003
  Receipt Date: 20110923
  Transmission Date: 20120403
  Serious: Yes (Other)
  Sender: FDA-Public Use
  Company Number: PHHY2011GB84797

PATIENT
  Age: 20 Year
  Sex: Male

DRUGS (2)
  1. FLUOXETINE [Suspect]
     Indication: MYASTHENIC SYNDROME
     Dosage: UNK
  2. QUINIDINE HCL [Concomitant]

REACTIONS (1)
  - RESPIRATORY DISORDER [None]
